FAERS Safety Report 12849753 (Version 3)
Quarter: 2017Q4

REPORT INFORMATION
  Report Type: Spontaneous
  Country: US (occurrence: US)
  Receive Date: 20161014
  Receipt Date: 20171027
  Transmission Date: 20180320
  Serious: No
  Sender: FDA-Public Use
  Company Number: US-ROCHE-1755881

PATIENT
  Age: 87 Year
  Sex: Male

DRUGS (11)
  1. ESBRIET [Suspect]
     Active Substance: PIRFENIDONE
     Indication: IDIOPATHIC PULMONARY FIBROSIS
     Route: 048
     Dates: start: 20160119
  2. PRAVASTATIN SODIUM. [Concomitant]
     Active Substance: PRAVASTATIN SODIUM
  3. ASPIRIN. [Concomitant]
     Active Substance: ASPIRIN
     Route: 065
  4. CETIRIZINE HCL [Concomitant]
     Active Substance: CETIRIZINE HYDROCHLORIDE
  5. ISOSORBIDE DINITRATE. [Concomitant]
     Active Substance: ISOSORBIDE DINITRATE
  6. ALBUTEROL SULFATE. [Concomitant]
     Active Substance: ALBUTEROL SULFATE
  7. LISINOPRIL. [Concomitant]
     Active Substance: LISINOPRIL
  8. LORAZEPAM. [Concomitant]
     Active Substance: LORAZEPAM
  9. CLOPIDOGREL BISULFATE. [Concomitant]
     Active Substance: CLOPIDOGREL BISULFATE
  10. BUDESONIDE. [Concomitant]
     Active Substance: BUDESONIDE
  11. CARVEDILOL. [Concomitant]
     Active Substance: CARVEDILOL

REACTIONS (5)
  - Pneumonia [Unknown]
  - Somnolence [Unknown]
  - Rash [Unknown]
  - Asthenia [Unknown]
  - Sleep disorder [Unknown]

NARRATIVE: CASE EVENT DATE: 201605
